FAERS Safety Report 4736373-X (Version None)
Quarter: 2005Q3

REPORT INFORMATION
  Report Type: 
  Country: None (occurrence: None)
  Receive Date: 20050802
  Receipt Date: 20050720
  Transmission Date: 20060218
  Serious: Yes (Other)
  Sender: FDA-Public Use
  Company Number: 2005104996

PATIENT
  Age: 61 Year
  Sex: Female

DRUGS (8)
  1. BEXTRA [Suspect]
     Indication: ARTHRITIS
     Dosage: 10 MG, 1 D, ORAL
     Route: 048
     Dates: start: 20041001, end: 20041001
  2. TARKE               (TRANDOLAPRIL, VERAPMAIL HYDROCHLORIDE) [Concomitant]
  3. K-DUR 10 [Concomitant]
  4. LASIX [Concomitant]
  5. METOLAZONR [Concomitant]
  6. GLUCOVANCE [Concomitant]
  7. VITAMINS [Concomitant]
  8. .................. [Concomitant]

REACTIONS (6)
  - DYSPNOEA [None]
  - EYE SWELLING [None]
  - PHARYNGEAL OEDEMA [None]
  - SWELLING [None]
  - SWELLING FACE [None]
  - URTICARIA GENERALISED [None]
